FAERS Safety Report 8069005-6 (Version None)
Quarter: 2011Q4

REPORT INFORMATION
  Report Type: 
  Country: None (occurrence: None)
  Receive Date: 20111221
  Receipt Date: 20110325
  Transmission Date: 20120403
  Serious: Yes (Disabling)
  Sender: FDA-Public Use
  Company Number: PHHY2011US06992

PATIENT
  Age: 83 Year
  Sex: Male
  Weight: 70 kg

DRUGS (6)
  1. EXJADE [Suspect]
     Indication: IRON OVERLOAD
     Dosage: 1500 MG, QD, ORAL, 500 MG, TID, ORAL
     Route: 048
     Dates: start: 20081201
  2. EXJADE [Suspect]
     Indication: IRON METABOLISM DISORDER
     Dosage: 1500 MG, QD, ORAL, 500 MG, TID, ORAL
     Route: 048
     Dates: start: 20081201
  3. EXJADE [Suspect]
     Indication: IRON OVERLOAD
     Dosage: 1500 MG, QD, ORAL, 500 MG, TID, ORAL
     Route: 048
     Dates: start: 20090120
  4. EXJADE [Suspect]
     Indication: IRON METABOLISM DISORDER
     Dosage: 1500 MG, QD, ORAL, 500 MG, TID, ORAL
     Route: 048
     Dates: start: 20090120
  5. EXJADE [Suspect]
     Indication: IRON OVERLOAD
     Dosage: 1500 MG, QD, ORAL, 500 MG, TID, ORAL
     Route: 048
     Dates: start: 20090116, end: 20110124
  6. EXJADE [Suspect]
     Indication: IRON METABOLISM DISORDER
     Dosage: 1500 MG, QD, ORAL, 500 MG, TID, ORAL
     Route: 048
     Dates: start: 20090116, end: 20110124

REACTIONS (1)
  - BLOOD CREATININE INCREASED [None]
